FAERS Safety Report 23437716 (Version 1)
Quarter: 2024Q1

REPORT INFORMATION
  Report Type: Spontaneous
  Country: US (occurrence: US)
  Receive Date: 20240124
  Receipt Date: 20240124
  Transmission Date: 20240409
  Serious: Yes (Hospitalization)
  Sender: FDA-Public Use
  Company Number: US-TEVA-VS-3148379

PATIENT
  Age: 50 Year

DRUGS (2)
  1. FENTANYL [Suspect]
     Active Substance: FENTANYL\FENTANYL CITRATE
     Indication: Product used for unknown indication
     Route: 065
  2. ALPRAZOLAM [Concomitant]
     Active Substance: ALPRAZOLAM
     Indication: Product used for unknown indication
     Route: 065

REACTIONS (16)
  - Miosis [Unknown]
  - Confusional state [Unknown]
  - Hyperkalaemia [Unknown]
  - Amnesia [Recovering/Resolving]
  - Respiratory acidosis [Unknown]
  - Blood creatinine increased [Unknown]
  - Hypoxia [Recovering/Resolving]
  - Hypercapnia [Unknown]
  - Hypoglycaemia [Unknown]
  - Hypotension [Unknown]
  - Liver function test increased [Unknown]
  - Hypothermia [Unknown]
  - Blood lactic acid increased [Unknown]
  - Agitation [Unknown]
  - Deafness neurosensory [Recovering/Resolving]
  - Overdose [Recovering/Resolving]
